FAERS Safety Report 10152480 (Version 1)
Quarter: 2014Q2

REPORT INFORMATION
  Report Type: Spontaneous
  Country: US (occurrence: None)
  Receive Date: 20140502
  Receipt Date: 20140502
  Transmission Date: 20141212
  Serious: Yes (Other)
  Sender: FDA-Public Use
  Company Number: None

PATIENT
  Age: 41 Year
  Sex: Female
  Weight: 56.7 kg

DRUGS (2)
  1. MARIO BADESCO CONTROL CREAM [Suspect]
     Indication: DERMATITIS CONTACT
     Dates: start: 20130325, end: 20140430
  2. CORTICOSTEROID [Suspect]

REACTIONS (6)
  - Application site swelling [None]
  - Application site erythema [None]
  - Skin fissures [None]
  - Skin disorder [None]
  - Drug withdrawal syndrome [None]
  - Visual impairment [None]
